FAERS Safety Report 21045762 (Version 3)
Quarter: 2025Q2

REPORT INFORMATION
  Report Type: Spontaneous
  Country: GB (occurrence: GB)
  Receive Date: 20220706
  Receipt Date: 20250620
  Transmission Date: 20250716
  Serious: Yes (Other)
  Sender: ORGANON
  Company Number: GB-MHRA-MED-202206281207184850-RQBHD

PATIENT
  Sex: Male

DRUGS (2)
  1. SIMVASTATIN [Suspect]
     Active Substance: SIMVASTATIN
  2. RAMIPRIL [Suspect]
     Active Substance: RAMIPRIL

REACTIONS (2)
  - Palpitations [Unknown]
  - Drug dispensed to wrong patient [Unknown]
